FAERS Safety Report 14900594 (Version 7)
Quarter: 2018Q4

REPORT INFORMATION
  Report Type: Spontaneous
  Country: US (occurrence: US)
  Receive Date: 20180516
  Receipt Date: 20180716
  Transmission Date: 20190204
  Serious: No
  Sender: FDA-Public Use
  Company Number: US-PFIZER INC-2018194277

PATIENT
  Age: 54 Year
  Sex: Male
  Weight: 63.49 kg

DRUGS (7)
  1. LYRICA [Suspect]
     Active Substance: PREGABALIN
     Indication: NEUROPATHY PERIPHERAL
     Dosage: 25 MG, TWICE A DAY
     Dates: start: 201803, end: 2018
  2. GABAPENTIN. [Suspect]
     Active Substance: GABAPENTIN
     Indication: NEUROPATHY PERIPHERAL
  3. LAMOTRINE MEPHA [Suspect]
     Active Substance: LAMOTRIGINE
     Indication: NEUROPATHY PERIPHERAL
  4. GABAPENTIN. [Suspect]
     Active Substance: GABAPENTIN
     Indication: NEURALGIA
     Dosage: 800 MG, FOUR TIMES A DAY
     Route: 048
     Dates: start: 2015
  5. LYRICA [Suspect]
     Active Substance: PREGABALIN
     Dosage: 50 MG, TWICE A DAY
     Route: 048
     Dates: start: 2018
  6. GABAPENTIN. [Suspect]
     Active Substance: GABAPENTIN
     Indication: NEUROPATHY PERIPHERAL
  7. LAMOTRINE MEPHA [Suspect]
     Active Substance: LAMOTRIGINE
     Indication: NEURALGIA
     Dosage: 100 MG, TWICE A DAY
     Route: 048
     Dates: start: 2016

REACTIONS (8)
  - Muscle fatigue [Not Recovered/Not Resolved]
  - Muscle spasms [Unknown]
  - Muscle disorder [Unknown]
  - Muscular weakness [Not Recovered/Not Resolved]
  - Fatigue [Unknown]
  - Myopathy [Unknown]
  - Myalgia [Not Recovered/Not Resolved]
  - Blood creatine phosphokinase increased [Unknown]

NARRATIVE: CASE EVENT DATE: 2018
